FAERS Safety Report 6781423-2 (Version None)
Quarter: 2010Q2

REPORT INFORMATION
  Report Type: 
  Country: None (occurrence: None)
  Receive Date: 20100621
  Receipt Date: 20100511
  Transmission Date: 20101027
  Serious: Yes (Other)
  Sender: FDA-Public Use
  Company Number: BR-ROCHE-502871

PATIENT
  Sex: Female
  Weight: 59 kg

DRUGS (5)
  1. FUZEON [Suspect]
     Indication: HIV INFECTION
     Dosage: FREQUENCY: ONE DOSE EVERY 12 HOURS.
     Route: 058
     Dates: start: 20070601
  2. KALETRA [Concomitant]
  3. ZIDOVUDINE [Concomitant]
  4. LAMIVUDINE [Concomitant]
  5. TENOFOVIR [Concomitant]

REACTIONS (2)
  - ABDOMINAL HERNIA [None]
  - HYPERSENSITIVITY [None]
